FAERS Safety Report 7429625-6 (Version None)
Quarter: 2011Q2

REPORT INFORMATION
  Report Type: 
  Country: None (occurrence: None)
  Receive Date: 20110421
  Receipt Date: 20110414
  Transmission Date: 20111010
  Serious: Yes (Other)
  Sender: FDA-Public Use
  Company Number: B0714162A

PATIENT
  Sex: Male
  Weight: 80 kg

DRUGS (3)
  1. ALLOPURINOL [Concomitant]
     Indication: PROPHYLAXIS
     Dosage: 300MG PER DAY
     Route: 048
     Dates: start: 20100801
  2. METOCARD [Concomitant]
     Indication: HYPERTENSION
     Dosage: 50MG PER DAY
     Route: 048
  3. CHLORAMBUCIL [Suspect]
     Dosage: 52MG PER DAY
     Route: 065
     Dates: start: 20100111

REACTIONS (2)
  - NEUTROPENIA [None]
  - PNEUMONIA [None]
